FAERS Safety Report 20909043 (Version 1)
Quarter: 2022Q2

REPORT INFORMATION
  Report Type: Spontaneous
  Country: GB (occurrence: None)
  Receive Date: 20220603
  Receipt Date: 20220603
  Transmission Date: 20220720
  Serious: Yes (Disabling, Other)
  Sender: FDA-Public Use
  Company Number: GB-ACS-20220016

PATIENT
  Age: 64 Year
  Sex: Male

DRUGS (1)
  1. CEFUROXIME [Suspect]
     Active Substance: CEFUROXIME
     Indication: Prophylaxis
     Dosage: IN TOTAL
     Route: 057

REACTIONS (6)
  - Retinal detachment [Recovered/Resolved with Sequelae]
  - Vitreous haemorrhage [Recovered/Resolved with Sequelae]
  - Retinal haemorrhage [Recovered/Resolved with Sequelae]
  - Maculopathy [Recovered/Resolved with Sequelae]
  - Conjunctival haemorrhage [Recovered/Resolved with Sequelae]
  - Off label use [Recovered/Resolved with Sequelae]
